FAERS Safety Report 12494797 (Version 1)
Quarter: 2016Q2

REPORT INFORMATION
  Report Type: Other
  Country: DE (occurrence: DE)
  Receive Date: 20160624
  Receipt Date: 20160624
  Transmission Date: 20160815
  Serious: Yes (Other)
  Sender: FDA-Public Use
  Company Number: DE-CIPLA LTD.-2016DE08038

PATIENT

DRUGS (4)
  1. FLUOROURACIL. [Suspect]
     Active Substance: FLUOROURACIL
     Dosage: 1212 MG/STAPLES
     Route: 065
     Dates: start: 20141020
  2. EPIRUBICIN [Suspect]
     Active Substance: EPIRUBICIN
     Dosage: 101MG/STAPLES
     Route: 065
     Dates: start: 20140929
  3. CISPLATIN. [Suspect]
     Active Substance: CISPLATIN
     Dosage: 121 MG/STAPLES
     Route: 065
     Dates: start: 20140929
  4. CAPECITABINE. [Suspect]
     Active Substance: CAPECITABINE
     Dosage: UNK
     Route: 048

REACTIONS (3)
  - Failure to anastomose [Not Recovered/Not Resolved]
  - Mediastinitis [Not Recovered/Not Resolved]
  - Anastomotic stenosis [Not Recovered/Not Resolved]

NARRATIVE: CASE EVENT DATE: 20140202
